FAERS Safety Report 10057777 (Version 2)
Quarter: 2014Q2

REPORT INFORMATION
  Report Type: Spontaneous
  Country: KR (occurrence: KR)
  Receive Date: 20140404
  Receipt Date: 20140404
  Transmission Date: 20141212
  Serious: Yes (Death)
  Sender: FDA-Public Use
  Company Number: KR-009507513-1403KOR007061

PATIENT
  Sex: 0

DRUGS (1)
  1. REMERON SOLTAB [Suspect]
     Dosage: PRESCRIBED 170 TABLETS
     Route: 048

REACTIONS (2)
  - Death [Fatal]
  - Somnolence [Unknown]
